FAERS Safety Report 9128439 (Version 2)
Quarter: 2013Q1

REPORT INFORMATION
  Report Type: Spontaneous
  Country: JP (occurrence: JP)
  Receive Date: 20130228
  Receipt Date: 20130328
  Transmission Date: 20140127
  Serious: Yes (Disabling, Other)
  Sender: FDA-Public Use
  Company Number: JP-B.I. PHARMACEUTICALS,INC./RIDGEFIELD-2013-BI-05194NB

PATIENT
  Age: 67 Year
  Sex: Male
  Weight: 70.9 kg

DRUGS (10)
  1. PRADAXA [Suspect]
     Indication: ATRIAL FIBRILLATION
     Dosage: 220 MG
     Route: 048
     Dates: start: 20120821, end: 20130308
  2. ANPLAG [Suspect]
     Indication: STENT PLACEMENT
     Dosage: 300 MG
     Route: 048
     Dates: start: 20120915, end: 20130308
  3. BAYASPIRIN [Suspect]
     Indication: VASCULAR GRAFT
     Dosage: 100 MG
     Route: 048
     Dates: start: 20060803, end: 20130308
  4. LIPITOR [Concomitant]
     Indication: HYPERLIPIDAEMIA
     Dosage: 10 MG
     Route: 048
     Dates: start: 20060914
  5. ALOSITOL [Concomitant]
     Dosage: 100 MG
     Route: 048
     Dates: start: 20080807
  6. SIGMART [Concomitant]
     Dosage: 10 MG
     Route: 048
  7. GASTER D [Concomitant]
     Dosage: 10 MG
     Route: 048
  8. ITOROL [Concomitant]
     Dosage: 40 MG
     Route: 048
  9. SELARA [Concomitant]
     Dosage: 25 MG
     Route: 048
  10. BIO-THREE [Concomitant]
     Route: 048

REACTIONS (2)
  - Vitreous haemorrhage [Unknown]
  - Blindness unilateral [Unknown]
